FAERS Safety Report 7713675-6 (Version None)
Quarter: 2011Q3

REPORT INFORMATION
  Report Type: 
  Country: None (occurrence: None)
  Receive Date: 20110826
  Receipt Date: 20110817
  Transmission Date: 20111222
  Serious: Yes (Hospitalization)
  Sender: FDA-Public Use
  Company Number: IT-ASTRAZENECA-2011SE49412

PATIENT
  Age: 29541 Day
  Sex: Female

DRUGS (9)
  1. ASPIRIN [Concomitant]
  2. BEZALIP [Concomitant]
     Route: 048
  3. RAMIPRIL [Concomitant]
     Route: 048
  4. ESOPRAL [Concomitant]
  5. ATENOLOL [Suspect]
     Indication: ARRHYTHMIA
     Route: 048
     Dates: start: 20090101, end: 20110712
  6. MODURETIC 5-50 [Concomitant]
  7. ZANEDIP [Concomitant]
     Route: 048
  8. AMIODARONE HCL [Concomitant]
  9. ISOSORBIDE MONONITRATE CALAO [Concomitant]
     Route: 048

REACTIONS (2)
  - SINUS BRADYCARDIA [None]
  - ELECTROCARDIOGRAM QT PROLONGED [None]
